FAERS Safety Report 10467865 (Version 1)
Quarter: 2014Q3

REPORT INFORMATION
  Report Type: Report from Study
  Country: BR (occurrence: BR)
  Receive Date: 20140922
  Receipt Date: 20140922
  Transmission Date: 20150326
  Serious: Yes (Other)
  Sender: FDA-Public Use
  Company Number: PHHY2014BR123227

PATIENT
  Sex: Female
  Weight: 53 kg

DRUGS (4)
  1. INSULIN [Concomitant]
     Active Substance: INSULIN NOS
     Indication: DIABETES MELLITUS
     Dosage: 22 IU IN MORNING AND 12 UNITS AT NIGHT
  2. CRESTOR [Concomitant]
     Active Substance: ROSUVASTATIN CALCIUM
     Indication: CARDIOVASCULAR DISORDER
     Dosage: 5 MG, DAILY
  3. DIOVAN [Suspect]
     Active Substance: VALSARTAN
     Indication: HYPERTENSION
     Dosage: 160 MG, DAILY
  4. DIOVAN [Suspect]
     Active Substance: VALSARTAN
     Dosage: 80 MG, DAILY

REACTIONS (1)
  - Dementia Alzheimer^s type [Unknown]
